FAERS Safety Report 6272682-3 (Version None)
Quarter: 2009Q3

REPORT INFORMATION
  Report Type: 
  Country: None (occurrence: None)
  Receive Date: 20090717
  Receipt Date: 20090709
  Transmission Date: 20100115
  Serious: Yes (Other)
  Sender: FDA-Public Use
  Company Number: BR-JNJFOC-20090704260

PATIENT
  Sex: Male
  Weight: 7.1 kg

DRUGS (3)
  1. TYLENOL (CAPLET) [Suspect]
     Route: 048
  2. TYLENOL (CAPLET) [Suspect]
     Indication: PYREXIA
     Route: 048
  3. KEFLEX [Concomitant]
     Indication: URINARY TRACT INFECTION
     Dosage: 1.5
     Route: 048

REACTIONS (3)
  - ACCIDENTAL OVERDOSE [None]
  - HYPOTHERMIA [None]
  - SOMNOLENCE [None]
